FAERS Safety Report 26122760 (Version 1)
Quarter: 2025Q4

REPORT INFORMATION
  Report Type: Spontaneous
  Country: EU (occurrence: EU)
  Receive Date: 20251204
  Receipt Date: 20251204
  Transmission Date: 20260117
  Serious: Yes (Other)
  Sender: TEVA
  Company Number: None

PATIENT
  Age: 43 Year
  Sex: Female

DRUGS (2)
  1. CAPECITABINE [Suspect]
     Active Substance: CAPECITABINE
     Indication: Rectal cancer
     Route: 065
     Dates: start: 2025
  2. OXALIPLATIN [Concomitant]
     Active Substance: OXALIPLATIN
     Indication: Product used for unknown indication
     Route: 065
     Dates: start: 2025

REACTIONS (7)
  - Temperature intolerance [Recovering/Resolving]
  - Hypoaesthesia oral [Recovering/Resolving]
  - Paraesthesia [Unknown]
  - Palpitations [Recovering/Resolving]
  - Gastrointestinal toxicity [Unknown]
  - Fatigue [Unknown]
  - Heart rate increased [Recovering/Resolving]

NARRATIVE: CASE EVENT DATE: 20250101
